FAERS Safety Report 20070672 (Version 1)
Quarter: 2021Q4

REPORT INFORMATION
  Report Type: Spontaneous
  Country: US (occurrence: None)
  Receive Date: 20211115
  Receipt Date: 20211115
  Transmission Date: 20220303
  Serious: Yes (Hospitalization)
  Sender: FDA-Public Use
  Company Number: None

PATIENT
  Age: 32 Year
  Sex: Female
  Weight: 141.75 kg

DRUGS (14)
  1. CASIRIVIMAB\IMDEVIMAB [Suspect]
     Active Substance: CASIRIVIMAB\IMDEVIMAB
     Indication: COVID-19
     Dosage: FREQUENCY : ONCE;?
     Route: 042
     Dates: start: 20211108, end: 20211108
  2. DEXAMETHASONE [Concomitant]
     Active Substance: DEXAMETHASONE
  3. REMDESIVIR [Concomitant]
     Active Substance: REMDESIVIR
  4. ZOFRAN [Concomitant]
     Active Substance: ONDANSETRON HYDROCHLORIDE
     Dates: start: 20211108
  5. LOPERAMIDE [Concomitant]
     Active Substance: LOPERAMIDE
     Dates: end: 20211111
  6. PROCHLORPERAZINE [Concomitant]
     Active Substance: PROCHLORPERAZINE
     Dates: start: 20211108, end: 20211111
  7. SPIRONOLACTONE [Concomitant]
     Active Substance: SPIRONOLACTONE
  8. TORSEMIDE [Concomitant]
     Active Substance: TORSEMIDE
  9. ENOXAPARIN [Concomitant]
     Active Substance: ENOXAPARIN
     Dates: end: 20211111
  10. ACETAMINOPHEN [Concomitant]
     Active Substance: ACETAMINOPHEN
     Dates: start: 20211108, end: 20211111
  11. METOPROLOL SUCCINATE [Concomitant]
     Active Substance: METOPROLOL SUCCINATE
  12. SERTRALINE [Concomitant]
     Active Substance: SERTRALINE HYDROCHLORIDE
     Dates: end: 20211111
  13. GUAIFENESIN [Concomitant]
     Active Substance: GUAIFENESIN
     Dates: end: 20211111
  14. SACUBITRIL\VALSARTAN [Concomitant]
     Active Substance: SACUBITRIL\VALSARTAN
     Dates: end: 20211111

REACTIONS (7)
  - Pyrexia [None]
  - Infusion related reaction [None]
  - Feeling abnormal [None]
  - Cough [None]
  - Nausea [None]
  - Burning sensation [None]
  - Diarrhoea [None]

NARRATIVE: CASE EVENT DATE: 20211108
